FAERS Safety Report 8209321-8 (Version None)
Quarter: 2012Q1

REPORT INFORMATION
  Report Type: 
  Country: None (occurrence: None)
  Receive Date: 20120314
  Receipt Date: 20120305
  Transmission Date: 20120608
  Serious: Yes (Other)
  Sender: FDA-Public Use
  Company Number: US-BAYER-2011-019389

PATIENT
  Age: 30 Year
  Sex: Female
  Weight: 57 kg

DRUGS (10)
  1. YAZ [Suspect]
     Dosage: UNK
     Dates: start: 20090215, end: 20090217
  2. ALBUTEROL [Concomitant]
     Dosage: 2 PUFF(S), TID
     Route: 055
     Dates: start: 20090201
  3. LORAZEPAM [Concomitant]
     Dosage: 0.5 MG, QD
     Route: 048
     Dates: start: 20090201
  4. CODEINE SULFATE [Concomitant]
     Dosage: UNK
     Dates: start: 20081118
  5. AEROBID [Concomitant]
     Dosage: 1 PUFF(S), QD
     Dates: start: 20090201
  6. AMOXICILLIN [Concomitant]
     Dosage: UNK
     Dates: start: 20081202
  7. CELEXA [Concomitant]
     Dosage: UNK
     Dates: start: 20081212
  8. YAZ [Suspect]
     Indication: CONTRACEPTION
     Dosage: UNK
     Dates: start: 20060401, end: 20080201
  9. YAZ [Suspect]
     Dosage: UNK
     Dates: start: 20080701, end: 20081201
  10. PHENERGAN [Concomitant]
     Dosage: UNK
     Dates: start: 20081118

REACTIONS (6)
  - EMOTIONAL DISTRESS [None]
  - DEEP VEIN THROMBOSIS [None]
  - OEDEMA PERIPHERAL [None]
  - PAIN [None]
  - PAIN IN EXTREMITY [None]
  - ANXIETY [None]
